FAERS Safety Report 11628367 (Version 1)
Quarter: 2015Q4

REPORT INFORMATION
  Report Type: Spontaneous
  Country: FR (occurrence: FR)
  Receive Date: 20151014
  Receipt Date: 20151014
  Transmission Date: 20160304
  Serious: Yes (Hospitalization)
  Sender: FDA-Public Use
  Company Number: FR-ASTRAZENECA-2015SE97053

PATIENT
  Age: 31349 Day
  Sex: Female

DRUGS (8)
  1. LEVOTHYROX [Concomitant]
     Active Substance: LEVOTHYROXINE
  2. VOLARENE [Concomitant]
  3. IMOVANE [Concomitant]
     Active Substance: ZOPICLONE
  4. XALATAN [Concomitant]
     Active Substance: LATANOPROST
  5. PREVISCAN [Suspect]
     Active Substance: FLUINDIONE
     Route: 048
     Dates: start: 20150613, end: 20150711
  6. LAMICTAL [Concomitant]
     Active Substance: LAMOTRIGINE
  7. DOLIPRANE [Concomitant]
     Active Substance: ACETAMINOPHEN
  8. INEXIUM [Suspect]
     Active Substance: ESOMEPRAZOLE
     Route: 048
     Dates: start: 20150613, end: 20150717

REACTIONS (8)
  - Pruritus [Recovered/Resolved]
  - Precancerous skin lesion [Unknown]
  - Photosensitivity reaction [Unknown]
  - Face oedema [Recovered/Resolved]
  - Oedema peripheral [Unknown]
  - Rash maculo-papular [Recovered/Resolved]
  - Toxic skin eruption [Unknown]
  - Oedema genital [Unknown]

NARRATIVE: CASE EVENT DATE: 20150627
